FAERS Safety Report 11790667 (Version 4)
Quarter: 2016Q1

REPORT INFORMATION
  Report Type: Spontaneous
  Country: US (occurrence: US)
  Receive Date: 20151201
  Receipt Date: 20160303
  Transmission Date: 20160525
  Serious: No
  Sender: FDA-Public Use
  Company Number: US-PFIZER INC-2015375323

PATIENT
  Age: 71 Year
  Sex: Female
  Weight: 61 kg

DRUGS (14)
  1. LIPITOR [Suspect]
     Active Substance: ATORVASTATIN CALCIUM
     Indication: BLOOD CHOLESTEROL INCREASED
     Dosage: 10 MG, DAILY
     Route: 048
     Dates: start: 1994, end: 20150526
  2. RANITIDINE [Concomitant]
     Active Substance: RANITIDINE\RANITIDINE HYDROCHLORIDE
     Dosage: 150 MG, 2X/DAY
     Dates: start: 201410
  3. SARNA [Concomitant]
     Active Substance: CAMPHOR (NATURAL)\MENTHOL\PRAMOXINE HYDROCHLORIDE
     Dosage: UNK
  4. SINGULAIR [Concomitant]
     Active Substance: MONTELUKAST SODIUM
     Indication: ASTHMA
     Dosage: 10 MG, 1X/DAY
     Route: 048
     Dates: start: 2013
  5. PREDNISONE. [Concomitant]
     Active Substance: PREDNISONE
     Dosage: 40 MG, UNK
     Dates: start: 201503
  6. DILTIAZEM [Suspect]
     Active Substance: DILTIAZEM
     Indication: SUPRAVENTRICULAR TACHYCARDIA
     Dosage: 360 MG, DAILY (240MG CAPSULE BY MOUTH AT NIGHT, 120MG CAPSULE BY MOUTH AFTER BREAKFAST)
     Route: 048
     Dates: start: 1995
  7. FLUOCINONIDE. [Concomitant]
     Active Substance: FLUOCINONIDE
     Dosage: UNK
     Dates: start: 201405
  8. CLOBETASOL [Concomitant]
     Active Substance: CLOBETASOL
     Dosage: UNK
     Dates: start: 201406
  9. PREDNISONE. [Concomitant]
     Active Substance: PREDNISONE
     Dosage: 20 MG, UNK
     Dates: start: 201503
  10. TRIAMCINOLONE [Concomitant]
     Active Substance: TRIAMCINOLONE
     Dosage: UNK
  11. ELIDEL [Concomitant]
     Active Substance: PIMECROLIMUS
     Dosage: UNK
     Dates: start: 20150521
  12. CARDIZEM [Concomitant]
     Active Substance: DILTIAZEM HYDROCHLORIDE
     Indication: SUPRAVENTRICULAR TACHYCARDIA
     Dosage: 360 MG, DAILY (240MG CAPSULE BY MOUTH AT NIGHT, 120MG CAPSULE BY MOUTH AFTER BREAKFAST)
     Route: 048
  13. CETAPHIL [Concomitant]
     Active Substance: AVOBENZONE\OCTOCRYLENE\TRICLOSAN
     Dosage: UNK
     Dates: start: 201402
  14. PREDNISONE. [Concomitant]
     Active Substance: PREDNISONE
     Dosage: 60 MG, UNK
     Dates: start: 201503

REACTIONS (7)
  - Rash generalised [Recovered/Resolved]
  - Pruritus [Recovered/Resolved]
  - Eczema [Not Recovered/Not Resolved]
  - Rash [Recovered/Resolved]
  - Hypersensitivity [Recovered/Resolved]
  - Dysphagia [Unknown]
  - Pharyngo-oesophageal diverticulum [Unknown]

NARRATIVE: CASE EVENT DATE: 201402
